FAERS Safety Report 20437077 (Version 1)
Quarter: 2022Q1

REPORT INFORMATION
  Report Type: Spontaneous
  Country: US (occurrence: None)
  Receive Date: 20220205
  Receipt Date: 20220205
  Transmission Date: 20220424
  Serious: No
  Sender: FDA-Public Use
  Company Number: None

PATIENT
  Age: 65 Year
  Sex: Female
  Weight: 69.75 kg

DRUGS (1)
  1. CASIRIVIMAB\IMDEVIMAB [Suspect]
     Active Substance: CASIRIVIMAB\IMDEVIMAB
     Indication: COVID-19
     Dosage: OTHER FREQUENCY : 4 INJECTIONS/1TIME;?
     Route: 058
     Dates: start: 20220120, end: 20220120

REACTIONS (4)
  - Injection site rash [None]
  - Rash erythematous [None]
  - Rash pruritic [None]
  - Skin lesion [None]

NARRATIVE: CASE EVENT DATE: 20220131
